FAERS Safety Report 12893048 (Version 1)
Quarter: 2016Q4

REPORT INFORMATION
  Report Type: Spontaneous
  Country: US (occurrence: US)
  Receive Date: 20161027
  Receipt Date: 20161027
  Transmission Date: 20170207
  Serious: No
  Sender: FDA-Public Use
  Company Number: None

PATIENT
  Age: 43 Year
  Sex: Female
  Weight: 119.25 kg

DRUGS (6)
  1. HYDROXYZINE HCL 25 MG TABLET, 25 MG [Suspect]
     Active Substance: HYDROXYZINE HYDROCHLORIDE
     Indication: INSOMNIA
     Dosage: ?          QUANTITY:1 TABLET(S);?
     Route: 048
     Dates: start: 20161020, end: 20161020
  2. MIRALAX [Concomitant]
     Active Substance: POLYETHYLENE GLYCOL 3350
  3. HYDROCODONE [Concomitant]
     Active Substance: HYDROCODONE
  4. PREVACID [Concomitant]
     Active Substance: LANSOPRAZOLE
  5. AMBIEN [Concomitant]
     Active Substance: ZOLPIDEM TARTRATE
  6. ATENOLOL. [Concomitant]
     Active Substance: ATENOLOL

REACTIONS (8)
  - Dizziness [None]
  - Speech disorder [None]
  - Palpitations [None]
  - Drooling [None]
  - Constipation [None]
  - Feeling abnormal [None]
  - Insomnia [None]
  - Fatigue [None]

NARRATIVE: CASE EVENT DATE: 20161020
